FAERS Safety Report 19626342 (Version 1)
Quarter: 2021Q3

REPORT INFORMATION
  Report Type: Spontaneous
  Country: US (occurrence: US)
  Receive Date: 20210728
  Receipt Date: 20210728
  Transmission Date: 20211014
  Serious: Yes (Hospitalization, Other)
  Sender: FDA-Public Use
  Company Number: None

PATIENT
  Age: 55 Year
  Sex: Female

DRUGS (12)
  1. EDARBI [Concomitant]
     Active Substance: AZILSARTAN KAMEDOXOMIL
  2. GLATIRAMTER 40MG/ML SYR [Suspect]
     Active Substance: GLATIRAMER
     Indication: MULTIPLE SCLEROSIS
     Dosage: OTHER DOSE:1 SYR;?
     Route: 058
     Dates: start: 20200915
  3. GABAPENTIN. [Concomitant]
     Active Substance: GABAPENTIN
  4. METOPROL TAR [Concomitant]
  5. PRILOSEC [Concomitant]
     Active Substance: OMEPRAZOLE MAGNESIUM
  6. VITAMIN C [Concomitant]
     Active Substance: ASCORBIC ACID
  7. TRAMADL/APAP [Concomitant]
  8. VITAMIN B12 [Concomitant]
     Active Substance: CYANOCOBALAMIN
  9. VITAMIN D [Concomitant]
     Active Substance: VITAMIN D NOS
  10. EZETIMBE [Concomitant]
     Active Substance: EZETIMIBE
  11. KLONOPIN [Concomitant]
     Active Substance: CLONAZEPAM
  12. MULTI?VT/FL CHW [Concomitant]

REACTIONS (1)
  - Gallbladder cancer [None]

NARRATIVE: CASE EVENT DATE: 20210526
